FAERS Safety Report 12811215 (Version 1)
Quarter: 2016Q4

REPORT INFORMATION
  Report Type: Spontaneous
  Country: US (occurrence: US)
  Receive Date: 20161005
  Receipt Date: 20161005
  Transmission Date: 20170207
  Serious: Yes (Hospitalization)
  Sender: FDA-Public Use
  Company Number: None

PATIENT
  Age: 63 Year
  Sex: Female
  Weight: 83.92 kg

DRUGS (11)
  1. ALBUTEROL. [Concomitant]
     Active Substance: ALBUTEROL
  2. LEVOTHYROXINE. [Concomitant]
     Active Substance: LEVOTHYROXINE
  3. HYDRACHLOROTHIZIDE [Concomitant]
  4. DIPHENOXYLATE ATROPINE GENERIC FOR LOMOTIL [Concomitant]
     Active Substance: ATROPINE\DIPHENOXYLATE HYDROCHLORIDE
  5. 50+VITAMIN [Concomitant]
  6. ACETAMINOPHEN. [Concomitant]
     Active Substance: ACETAMINOPHEN
  7. TRAMADOL. [Concomitant]
     Active Substance: TRAMADOL
  8. CITRACEL [Concomitant]
  9. HYOSCYAMINE 0.125MGSUBLINGUAL TABS VIRTUS [Suspect]
     Active Substance: HYOSCYAMINE
     Indication: ABDOMINAL PAIN UPPER
     Dosage: 1 TAB UNDER TONGUE  DISVOLVE UNDER TONGUE
     Dates: start: 20160316, end: 20160912
  10. PROBIOTIC [Concomitant]
     Active Substance: PROBIOTICS NOS
  11. COLACE [Concomitant]
     Active Substance: DOCUSATE SODIUM

REACTIONS (18)
  - Gastrointestinal pain [None]
  - Irritability [None]
  - Vision blurred [None]
  - Heart rate increased [None]
  - Balance disorder [None]
  - Dizziness [None]
  - Gait disturbance [None]
  - Chills [None]
  - Unevaluable event [None]
  - Muscle spasms [None]
  - Dysarthria [None]
  - Aphasia [None]
  - Feeling hot [None]
  - Dry mouth [None]
  - Confusional state [None]
  - Disorientation [None]
  - Disturbance in attention [None]
  - Heart rate irregular [None]

NARRATIVE: CASE EVENT DATE: 20160303
